FAERS Safety Report 24720518 (Version 1)
Quarter: 2024Q4

REPORT INFORMATION
  Report Type: Spontaneous
  Country: FR (occurrence: FR)
  Receive Date: 20241211
  Receipt Date: 20241211
  Transmission Date: 20250115
  Serious: Yes (Hospitalization, Other)
  Sender: AUROBINDO
  Company Number: FR-AFSSAPS-MP2024001742

PATIENT
  Age: 70 Year
  Sex: Female
  Weight: 55 kg

DRUGS (3)
  1. PRASUGREL HYDROBROMIDE [Suspect]
     Active Substance: PRASUGREL HYDROBROMIDE
     Indication: Cardiovascular event prophylaxis
     Dosage: 10 MILLIGRAM, ONCE A DAY
     Route: 048
     Dates: end: 20241120
  2. KARDEGIC [Suspect]
     Active Substance: ASPIRIN DL-LYSINE
     Indication: Cardiovascular event prophylaxis
     Dosage: 75 MILLIGRAM, ONCE A DAY
     Route: 048
  3. HYDROCHLOROTHIAZIDE\IRBESARTAN [Concomitant]
     Active Substance: HYDROCHLOROTHIAZIDE\IRBESARTAN
     Indication: Hypertension
     Dosage: 1 DOSAGE FORM, ONCE A DAY(300/12)
     Route: 048

REACTIONS (3)
  - Melaena [Recovered/Resolved]
  - Haematoma [Unknown]
  - Drug interaction [Recovered/Resolved]

NARRATIVE: CASE EVENT DATE: 20241119
